FAERS Safety Report 6055661-0 (Version None)
Quarter: 2009Q1

REPORT INFORMATION
  Report Type: 
  Country: None (occurrence: None)
  Receive Date: 20090128
  Receipt Date: 20090116
  Transmission Date: 20090719
  Serious: Yes (Other)
  Sender: FDA-Public Use
  Company Number: BR-PFIZER INC-2008097689

PATIENT

DRUGS (1)
  1. FRONTAL [Suspect]
     Dosage: UNKNOWN TID EVERY DAY TDD:UNKNOWN
     Route: 048
     Dates: start: 20080911

REACTIONS (2)
  - CEREBROVASCULAR ACCIDENT [None]
  - MYALGIA [None]
